FAERS Safety Report 6522371-2 (Version None)
Quarter: 2009Q4

REPORT INFORMATION
  Report Type: 
  Country: None (occurrence: None)
  Receive Date: 20091229
  Receipt Date: 20091229
  Transmission Date: 20100525
  Serious: Yes (Hospitalization)
  Sender: FDA-Public Use
  Company Number: None

PATIENT
  Age: 28 Year
  Sex: Female
  Weight: 61 kg

DRUGS (5)
  1. WELLBUTRIN [Suspect]
     Indication: SUICIDE ATTEMPT
     Dosage: PO
     Route: 048
     Dates: start: 20091006
  2. CLONAZEPAM [Concomitant]
  3. PERCOCET [Concomitant]
  4. RANITIDINE [Concomitant]
  5. TRAMADOL HCL [Concomitant]

REACTIONS (5)
  - CONVULSION [None]
  - ELECTROCARDIOGRAM QT PROLONGED [None]
  - HEADACHE [None]
  - INCORRECT DOSE ADMINISTERED [None]
  - SUICIDE ATTEMPT [None]
